FAERS Safety Report 4384504-6 (Version None)
Quarter: 2004Q2

REPORT INFORMATION
  Report Type: 
  Country: None (occurrence: None)
  Receive Date: 20040610
  Receipt Date: 20040330
  Transmission Date: 20050107
  Serious: Yes (Hospitalization)
  Sender: FDA-Public Use
  Company Number: F03200400031

PATIENT
  Age: 72 Year
  Sex: Female
  Weight: 78.9259 kg

DRUGS (4)
  1. ELOXATIN [Suspect]
     Indication: ADENOCARCINOMA PANCREAS
     Dosage: 50 MG Q2W - INTRAVENOUS NOS
     Route: 042
     Dates: start: 20040315, end: 20040315
  2. GEMCITABINE [Concomitant]
  3. FLUOROURACIL [Concomitant]
  4. IRINOTECAN [Concomitant]

REACTIONS (2)
  - ANAEMIA [None]
  - ASTHENIA [None]
